FAERS Safety Report 14090733 (Version 2)
Quarter: 2019Q3

REPORT INFORMATION
  Report Type: Report from Study
  Country: US (occurrence: US)
  Receive Date: 20171015
  Receipt Date: 20190801
  Transmission Date: 20191004
  Serious: No
  Sender: FDA-Public Use
  Company Number: US-SA-2017SA153576

PATIENT
  Age: 60 Year
  Sex: Female

DRUGS (6)
  1. MELATONIN [CALCIUM;MELATONIN;PYRIDOXINE HYDROCHLORIDE] [Concomitant]
  2. TERIFLUNOMIDE. [Suspect]
     Active Substance: TERIFLUNOMIDE
     Dosage: 14 MG, QD
     Route: 048
     Dates: start: 20171026
  3. TERIFLUNOMIDE. [Suspect]
     Active Substance: TERIFLUNOMIDE
     Indication: MULTIPLE SCLEROSIS
     Dosage: 14 MG, QD
     Route: 048
     Dates: start: 20170811
  4. VITAMIN D3 [Concomitant]
     Active Substance: CHOLECALCIFEROL
  5. TERIFLUNOMIDE. [Suspect]
     Active Substance: TERIFLUNOMIDE
     Dosage: 7 MG, QD
     Route: 048
     Dates: start: 20190218
  6. MULTIVITAMINS [VITAMINS NOS] [Concomitant]
     Active Substance: VITAMINS

REACTIONS (3)
  - Insomnia [Recovered/Resolved]
  - Pruritus [Unknown]
  - Confusional state [Unknown]

NARRATIVE: CASE EVENT DATE: 20170812
